FAERS Safety Report 17253605 (Version 1)
Quarter: 2019Q4

REPORT INFORMATION
  Report Type: Spontaneous
  Country: US (occurrence: US)
  Receive Date: 20191216
  Receipt Date: 20191216
  Transmission Date: 20200122
  Serious: No
  Sender: FDA-Public Use
  Company Number: None

PATIENT
  Age: 48 Year
  Sex: Female

DRUGS (1)
  1. CINACALCET HCL 30MG CIPLA USA [Suspect]
     Active Substance: CINACALCET HYDROCHLORIDE
     Indication: HYPERTENSIVE NEPHROPATHY
     Route: 048
     Dates: start: 20191112

REACTIONS (2)
  - Bone pain [None]
  - Pruritus [None]

NARRATIVE: CASE EVENT DATE: 201911
